FAERS Safety Report 4596341-8 (Version None)
Quarter: 2005Q1

REPORT INFORMATION
  Report Type: 
  Country: None (occurrence: None)
  Receive Date: 20050228
  Receipt Date: 20050217
  Transmission Date: 20050727
  Serious: Yes (Hospitalization)
  Sender: FDA-Public Use
  Company Number: 2005-02-0978

PATIENT
  Age: 6 Year
  Sex: Female
  Weight: 21 kg

DRUGS (3)
  1. CELESTONE [Suspect]
     Indication: RHINORRHOEA
     Dosage: 150 DROPS QD ORAL
     Route: 048
     Dates: start: 20050112, end: 20050112
  2. CARBOCISTEINE SYRUP [Suspect]
     Indication: RHINORRHOEA
     Dosage: 1 DOSE QD ORAL
     Route: 048
     Dates: start: 20050112, end: 20050112
  3. AMOXICILLIN [Suspect]
     Indication: RHINORRHOEA
     Dosage: 250 MG TID ORAL
     Route: 048
     Dates: start: 20050112, end: 20050112

REACTIONS (6)
  - DYSPNOEA [None]
  - FACE OEDEMA [None]
  - LOSS OF CONSCIOUSNESS [None]
  - MALAISE [None]
  - URTICARIA [None]
  - VOMITING [None]
